FAERS Safety Report 5005575-X (Version None)
Quarter: 2006Q2

REPORT INFORMATION
  Report Type: 
  Country: None (occurrence: None)
  Receive Date: 20060512
  Receipt Date: 20060426
  Transmission Date: 20061013
  Serious: Yes (Hospitalization)
  Sender: FDA-Public Use
  Company Number: 200610407BFR

PATIENT
  Age: 83 Year
  Sex: Female

DRUGS (8)
  1. MOXIFLOXACIN HYDROCHLORIDE [Suspect]
     Indication: BRONCHITIS
     Dosage: 400 MG, QD, ORAL
     Route: 048
     Dates: start: 20060305, end: 20060312
  2. PIRACETAM [Concomitant]
  3. VASTAREL [Concomitant]
  4. BROMAZEPAM [Concomitant]
  5. LERCAN [Concomitant]
  6. NASONEX [Concomitant]
  7. TRINITRINE [Concomitant]
  8. ZOLPIDEM TARTRATE [Concomitant]

REACTIONS (4)
  - DERMATITIS BULLOUS [None]
  - LEUKOCYTOCLASTIC VASCULITIS [None]
  - NECROSIS [None]
  - OEDEMA PERIPHERAL [None]
